FAERS Safety Report 10350947 (Version 2)
Quarter: 2014Q3

REPORT INFORMATION
  Report Type: Report from Study
  Country: FR (occurrence: FR)
  Receive Date: 20140730
  Receipt Date: 20140730
  Transmission Date: 20150326
  Serious: Yes (Other)
  Sender: FDA-Public Use
  Company Number: PHHY2013FR137487

PATIENT
  Age: 81 Year
  Sex: Female
  Weight: 45 kg

DRUGS (17)
  1. ACLASTA [Suspect]
     Active Substance: ZOLEDRONIC ACID
     Indication: OSTEOPOROSIS
     Dosage: UNK UKN, UNK
     Route: 042
     Dates: start: 20111104
  2. LEVOTHYROX [Concomitant]
     Active Substance: LEVOTHYROXINE
     Dosage: 50 UG, QD
  3. DETENSIEL [Concomitant]
     Active Substance: BISOPROLOL FUMARATE
     Dosage: 0.5 MG, UNK
  4. CORTANCYL [Concomitant]
     Active Substance: PREDNISONE
     Dosage: UNK UKN, UNK
     Dates: start: 2013
  5. SOLUPRED [Concomitant]
     Active Substance: PREDNISOLONE
     Dosage: UNK UKN, UNK
     Dates: start: 2012, end: 201207
  6. CELESTENE [Concomitant]
     Active Substance: BETAMETHASONE
     Dosage: UNK UKN, UNK
     Dates: start: 2012, end: 201208
  7. ACLASTA [Suspect]
     Active Substance: ZOLEDRONIC ACID
     Dosage: UNK UKN, UNK
     Route: 042
     Dates: start: 20130301
  8. PLAVIX [Concomitant]
     Active Substance: CLOPIDOGREL BISULFATE
     Dosage: 75 MG, UNK
  9. DETENSIEL [Concomitant]
     Active Substance: BISOPROLOL FUMARATE
     Indication: HYPERTENSION
     Dosage: 1 DF, QD
     Dates: start: 1985
  10. PREVISCAN [Suspect]
     Active Substance: FLUINDIONE
     Indication: ATRIAL FIBRILLATION
     Dosage: 1 DF, QD
     Dates: start: 201310
  11. CETRIZINE [Concomitant]
     Active Substance: CETIRIZINE HYDROCHLORIDE
     Dosage: 10 MG FOR ONE MONTH
  12. COLCHICINE. [Concomitant]
     Active Substance: COLCHICINE
     Dosage: UNK UKN, UNK
     Dates: start: 2012, end: 201207
  13. PREVISCAN [Suspect]
     Active Substance: FLUINDIONE
     Dosage: UNK UKN, UNK
     Dates: start: 201311
  14. PLAVIX [Concomitant]
     Active Substance: CLOPIDOGREL BISULFATE
     Indication: CORONARY ARTERY DISEASE
     Dosage: 1 DF, QD
     Dates: start: 2004
  15. BEPANTHEN                               /AUT/ [Concomitant]
     Dosage: UNK UKN, UNK
     Dates: start: 2012, end: 201206
  16. LEVOTHYROX [Concomitant]
     Active Substance: LEVOTHYROXINE
     Indication: HYPOTHYROIDISM
     Dosage: UNK UKN, UNK
     Dates: start: 1998
  17. CORTANCYL [Concomitant]
     Active Substance: PREDNISONE
     Dosage: UNK UKN, UNK
     Dates: start: 2010, end: 201203

REACTIONS (8)
  - Heart rate decreased [Unknown]
  - Mitral valve incompetence [Unknown]
  - Atrial fibrillation [Recovering/Resolving]
  - Blood pressure systolic increased [Unknown]
  - Dermatitis exfoliative [Recovered/Resolved]
  - Pruritus [Recovered/Resolved]
  - Electrocardiogram T wave inversion [Unknown]
  - Dilatation atrial [Unknown]

NARRATIVE: CASE EVENT DATE: 20131010
